FAERS Safety Report 7651379-9 (Version None)
Quarter: 2011Q3

REPORT INFORMATION
  Report Type: 
  Country: None (occurrence: None)
  Receive Date: 20110802
  Receipt Date: 20110721
  Transmission Date: 20111222
  Serious: Yes (Other)
  Sender: FDA-Public Use
  Company Number: PHHY2011US66743

PATIENT
  Sex: Female

DRUGS (8)
  1. GILENYA [Suspect]
     Dosage: 0.5 MG, QD
     Route: 048
  2. PROVIGIL [Concomitant]
     Dosage: 3 DF, DAILY
  3. SEPTRA [Concomitant]
     Dosage: 100-160 MG DAILY
  4. CITALOPRAM [Concomitant]
     Dosage: 10 MG IN THE MORNING QD
     Dates: end: 20110716
  5. TRAZODONE HYDROCHLORIDE [Concomitant]
     Dosage: 50 MG AT NIGHT
  6. ULTRAM [Concomitant]
     Dosage: 6 DF, DAILY
  7. BACLOFEN [Concomitant]
     Dosage: 3 DF, DAILY
  8. LAMOTRIGINE [Concomitant]
     Dosage: 200 MG, QD

REACTIONS (10)
  - HEART RATE DECREASED [None]
  - HYPOAESTHESIA [None]
  - SKIN INFECTION [None]
  - SINUSITIS [None]
  - TREMOR [None]
  - SPEECH DISORDER [None]
  - MULTIPLE SCLEROSIS RELAPSE [None]
  - AMNESIA [None]
  - BRONCHITIS [None]
  - ASTHENIA [None]
